FAERS Safety Report 4459363-3 (Version None)
Quarter: 2004Q3

REPORT INFORMATION
  Report Type: 
  Country: None (occurrence: None)
  Receive Date: 20040923
  Receipt Date: 20040913
  Transmission Date: 20050211
  Serious: Yes (Death)
  Sender: FDA-Public Use
  Company Number: 04UK 0207

PATIENT
  Age: 60 Year
  Sex: Male

DRUGS (3)
  1. TIROFIBAN HYDROCHLORIDE [Suspect]
     Dates: start: 20040811
  2. HEPARIN-FRACTION, SODIUM SALT [Concomitant]
  3. ACETYLSALICYLIC ACID [Concomitant]

REACTIONS (1)
  - DEATH [None]
